FAERS Safety Report 5500193-9 (Version None)
Quarter: 2007Q4

REPORT INFORMATION
  Report Type: 
  Country: None (occurrence: None)
  Receive Date: 20071025
  Receipt Date: 20071015
  Transmission Date: 20080405
  Serious: Yes (Death, Life-Threatening, Hospitalization, Disabling)
  Sender: FDA-Public Use
  Company Number: E2090-00284-SPO-JP

PATIENT
  Age: 61 Year
  Sex: Male

DRUGS (15)
  1. ZONISAMIDE [Suspect]
     Indication: CEREBRAL HAEMORRHAGE
     Dosage: 200 MG, 1 IN 1 D, ORAL
     Route: 048
     Dates: start: 20070614, end: 20070717
  2. ZONISAMIDE [Suspect]
     Indication: CONVULSION
     Dosage: 200 MG, 1 IN 1 D, ORAL
     Route: 048
     Dates: start: 20070614, end: 20070717
  3. ADALAT [Concomitant]
  4. FAMOTIDINE [Concomitant]
  5. PALGIN (PALGIN) [Concomitant]
  6. GRAMALIL (TIAPRIDE HYDROCHLORIDE) [Concomitant]
  7. RISPERDAL [Concomitant]
  8. CANDESARTAN CILEXETIL [Concomitant]
  9. DIAZEPAM [Concomitant]
  10. MYSLEE (ZOLPIDEM) (ZOLPIDEM) [Concomitant]
  11. TAMSULOSIN HCL [Concomitant]
  12. LEVOFLOXACIN [Concomitant]
  13. URINORM (BENZBROMARONE) [Concomitant]
  14. KAMAG G (MAGNESIUM OXIDE) [Concomitant]
  15. DEPAKENE [Concomitant]

REACTIONS (37)
  - ABDOMINAL DISTENSION [None]
  - ABDOMINAL PAIN [None]
  - ASCITES [None]
  - ATELECTASIS [None]
  - BLOOD CHLORIDE DECREASED [None]
  - BLOOD IMMUNOGLOBULIN G INCREASED [None]
  - BLOOD POTASSIUM INCREASED [None]
  - BLOOD SODIUM DECREASED [None]
  - CANDIDIASIS [None]
  - CULTURE POSITIVE [None]
  - CYTOMEGALOVIRUS GASTROINTESTINAL INFECTION [None]
  - DECREASED APPETITE [None]
  - DEPRESSED LEVEL OF CONSCIOUSNESS [None]
  - DIABETIC KETOACIDOSIS [None]
  - DIARRHOEA [None]
  - DOCUMENTED HYPERSENSITIVITY TO ADMINISTERED DRUG [None]
  - DRUG RASH WITH EOSINOPHILIA AND SYSTEMIC SYMPTOMS [None]
  - DUODENAL ULCER [None]
  - DYSPHAGIA [None]
  - ERYTHEMA MULTIFORME [None]
  - FUNGAL INFECTION [None]
  - HEPATIC CIRRHOSIS [None]
  - HEPATIC FUNCTION ABNORMAL [None]
  - HUMAN HERPES VIRUS 6 SEROLOGY POSITIVE [None]
  - HYPOALBUMINAEMIA [None]
  - IMMUNODEFICIENCY [None]
  - INFECTION IN AN IMMUNOCOMPROMISED HOST [None]
  - LYMPHOCYTE STIMULATION TEST POSITIVE [None]
  - MELAENA [None]
  - METABOLIC ACIDOSIS [None]
  - NEPHRITIS [None]
  - PLEURAL EFFUSION [None]
  - PNEUMONIA [None]
  - PNEUMONIA BACTERIAL [None]
  - SEPTIC SHOCK [None]
  - TACHYPNOEA [None]
  - TYPE 1 DIABETES MELLITUS [None]
